FAERS Safety Report 10385487 (Version 1)
Quarter: 2014Q1

REPORT INFORMATION
  Report Type: Spontaneous
  Country: US (occurrence: None)
  Receive Date: 20140306
  Receipt Date: 20140306
  Transmission Date: 20141002
  Serious: Yes (Hospitalization)
  Sender: FDA-Public Use
  Company Number: 163-21880-13042750

PATIENT
  Age: 66 Year
  Sex: Male
  Weight: 74.39 kg

DRUGS (7)
  1. REVLIMID (LENALIDOMIDE) (10 MILLIGRAM, CAPSULES) [Suspect]
     Indication: PLASMA CELL MYELOMA
     Dosage: 21 IN 28D
     Route: 048
     Dates: start: 20120409, end: 201304
  2. BENDAMYSTINE (BENDAMUSTINE) [Concomitant]
  3. DECADRON (DEXAMETHASONE) [Concomitant]
  4. AMIODARONE (AMIODARONE) [Concomitant]
  5. ASPIRIN (ACETYLSALICYLIC ACID) [Concomitant]
  6. LASIX (FUROSEMIDE) [Concomitant]
  7. SYNTHROID (LEVOTHYROXINE SODIUM) [Concomitant]

REACTIONS (2)
  - Plasma cell myeloma [None]
  - Full blood count decreased [None]
